FAERS Safety Report 8269579-6 (Version None)
Quarter: 2012Q2

REPORT INFORMATION
  Report Type: 
  Country: None (occurrence: None)
  Receive Date: 20120409
  Receipt Date: 20120329
  Transmission Date: 20120825
  Serious: Yes (Hospitalization)
  Sender: FDA-Public Use
  Company Number: AU-BRISTOL-MYERS SQUIBB COMPANY-16469991

PATIENT
  Age: 55 Year
  Sex: Male

DRUGS (2)
  1. CARBOPLATIN [Suspect]
     Indication: NON-SMALL CELL LUNG CANCER
     Dosage: CYC: 2
     Route: 042
     Dates: start: 20120224, end: 20120315
  2. TAXOL [Suspect]
     Indication: NON-SMALL CELL LUNG CANCER
     Dosage: CYC: 2
     Route: 042
     Dates: start: 20120224, end: 20120315

REACTIONS (3)
  - VOMITING [None]
  - RENAL FAILURE ACUTE [None]
  - DIARRHOEA [None]
